FAERS Safety Report 23775744 (Version 1)
Quarter: 2024Q2

REPORT INFORMATION
  Report Type: Spontaneous
  Country: IT (occurrence: IT)
  Receive Date: 20240423
  Receipt Date: 20240423
  Transmission Date: 20240716
  Serious: Yes (Hospitalization)
  Sender: FDA-Public Use
  Company Number: None

PATIENT
  Sex: Male

DRUGS (2)
  1. VENLAFAXINE [Suspect]
     Active Substance: VENLAFAXINE HYDROCHLORIDE
     Indication: Intentional overdose
     Dosage: VENLAFAXINA
     Route: 048
     Dates: start: 20240313, end: 20240313
  2. XANAX [Suspect]
     Active Substance: ALPRAZOLAM
     Indication: Intentional overdose
     Route: 048
     Dates: start: 20240313, end: 20240313

REACTIONS (2)
  - Loss of consciousness [Recovering/Resolving]
  - Intentional overdose [Recovering/Resolving]

NARRATIVE: CASE EVENT DATE: 20240313
